FAERS Safety Report 8575089-9 (Version None)
Quarter: 2012Q3

REPORT INFORMATION
  Report Type: 
  Country: None (occurrence: None)
  Receive Date: 20120807
  Receipt Date: 20120724
  Transmission Date: 20120928
  Serious: No
  Sender: FDA-Public Use
  Company Number: US-ROXANE LABORATORIES, INC.-2012-RO-01599RO

PATIENT
  Age: 63 Year
  Sex: Female

DRUGS (1)
  1. AZATHIOPRINE SODIUM [Suspect]
     Indication: COLITIS ULCERATIVE
     Dosage: 150 MG
     Route: 048

REACTIONS (1)
  - ALOPECIA [None]
